FAERS Safety Report 5978291-5 (Version None)
Quarter: 2008Q4

REPORT INFORMATION
  Report Type: 
  Country: None (occurrence: None)
  Receive Date: 20081204
  Receipt Date: 20081128
  Transmission Date: 20090506
  Serious: Yes (Hospitalization)
  Sender: FDA-Public Use
  Company Number: FR-BRISTOL-MYERS SQUIBB COMPANY-14425862

PATIENT
  Age: 70 Year
  Sex: Female
  Weight: 58 kg

DRUGS (7)
  1. IXABEPILONE [Suspect]
     Indication: BREAST CANCER
     Route: 042
     Dates: start: 20081113, end: 20081113
  2. CYCLOPHOSPHAMIDE [Suspect]
     Indication: BREAST CANCER
     Route: 042
     Dates: start: 20081023, end: 20081023
  3. EPIRUBICIN [Suspect]
     Indication: BREAST CANCER
     Route: 042
     Dates: start: 20081023, end: 20081023
  4. FLUOROURACIL [Suspect]
     Indication: BREAST CANCER
     Route: 042
     Dates: start: 20081023, end: 20081023
  5. KYTRIL [Concomitant]
     Indication: PREMEDICATION
     Dosage: 23AUG08-23NOV08,12NOV08-16NOV08
     Route: 048
     Dates: start: 20081023, end: 20081123
  6. SOLU-MEDROL [Concomitant]
     Indication: PREMEDICATION
     Dates: start: 20080821, end: 20081023
  7. ZOPHREN [Concomitant]
     Indication: PREMEDICATION
     Route: 042
     Dates: start: 20080821, end: 20081023

REACTIONS (1)
  - HEADACHE [None]
